FAERS Safety Report 6441956-5 (Version None)
Quarter: 2009Q4

REPORT INFORMATION
  Report Type: 
  Country: None (occurrence: None)
  Receive Date: 20091112
  Receipt Date: 20091028
  Transmission Date: 20100525
  Serious: Yes (Other)
  Sender: FDA-Public Use
  Company Number: AUR-APL-2009-01098

PATIENT
  Age: 43 Year
  Sex: Male

DRUGS (2)
  1. FLUOXETINE [Suspect]
     Indication: DEPRESSION
     Dosage: 20-40MG, DAILY  } 5 MOS
  2. CITALOPRAM HYDROBROMIDE [Suspect]
     Indication: MIGRAINE
     Dosage: 10MG, DAILY

REACTIONS (1)
  - CAROTIDYNIA [None]
